FAERS Safety Report 8910652 (Version 1)
Quarter: 2012Q4

REPORT INFORMATION
  Report Type: Spontaneous
  Country: FR (occurrence: None)
  Receive Date: 20121108
  Receipt Date: 20121108
  Transmission Date: 20130627
  Serious: Yes (Other)
  Sender: FDA-Public Use
  Company Number: B0842251A

PATIENT
  Age: 5 Year
  Weight: 11.98 kg

DRUGS (4)
  1. ARIXTRA [Suspect]
     Indication: PAIN
  2. ENOXAPARIN [Concomitant]
  3. PARACETAMOL [Concomitant]
  4. CODEINE [Concomitant]

REACTIONS (4)
  - Hepatitis [None]
  - Nausea [None]
  - Vomiting [None]
  - Hepatotoxicity [None]
